FAERS Safety Report 7768736-2 (Version None)
Quarter: 2011Q3

REPORT INFORMATION
  Report Type: 
  Country: None (occurrence: None)
  Receive Date: 20110922
  Receipt Date: 20110609
  Transmission Date: 20111222
  Serious: Yes (Other)
  Sender: FDA-Public Use
  Company Number: US-ASTRAZENECA-2010SE58688

PATIENT
  Age: 50 Year
  Sex: Male
  Weight: 74.8 kg

DRUGS (4)
  1. SEROQUEL [Suspect]
     Route: 048
  2. SEROQUEL [Suspect]
     Route: 048
     Dates: start: 20100701
  3. METHADONE HCL [Concomitant]
     Indication: BACK PAIN
  4. SEROQUEL [Suspect]
     Indication: BIPOLAR DISORDER
     Route: 048
     Dates: start: 20100601, end: 20100701

REACTIONS (8)
  - PANIC ATTACK [None]
  - INCORRECT DOSE ADMINISTERED [None]
  - INSOMNIA [None]
  - SUICIDAL IDEATION [None]
  - MALAISE [None]
  - ANXIETY [None]
  - DRUG DOSE OMISSION [None]
  - MYALGIA [None]
